FAERS Safety Report 11330362 (Version 3)
Quarter: 2015Q3

REPORT INFORMATION
  Report Type: Spontaneous
  Country: US (occurrence: US)
  Receive Date: 20150803
  Receipt Date: 20150915
  Transmission Date: 20151125
  Serious: No
  Sender: FDA-Public Use
  Company Number: US-009507513-1507USA013001

PATIENT
  Age: 41 Year
  Sex: Male
  Weight: 118.37 kg

DRUGS (1)
  1. JANUMET [Suspect]
     Active Substance: METFORMIN HYDROCHLORIDE\SITAGLIPTIN PHOSPHATE
     Indication: DIABETES MELLITUS
     Dosage: 1 DF, QD
     Route: 048
     Dates: start: 20150423, end: 20150703

REACTIONS (3)
  - Dyspnoea [Recovered/Resolved]
  - Inappropriate schedule of drug administration [Unknown]
  - Drug administration error [Unknown]

NARRATIVE: CASE EVENT DATE: 2015
